FAERS Safety Report 17677454 (Version 1)
Quarter: 2020Q2

REPORT INFORMATION
  Report Type: Spontaneous
  Country: GB (occurrence: GB)
  Receive Date: 20200416
  Receipt Date: 20200416
  Transmission Date: 20200714
  Serious: Yes (Hospitalization)
  Sender: FDA-Public Use
  Company Number: NVSC2020GB101864

PATIENT
  Age: 44 Year
  Sex: Male

DRUGS (3)
  1. CEFALEXIN [Suspect]
     Active Substance: CEPHALEXIN
     Indication: BLOOD URINE PRESENT
     Dosage: 1000 MG, QD
     Route: 048
     Dates: start: 20190313, end: 20190313
  2. OMEPRAZOLE. [Concomitant]
     Active Substance: OMEPRAZOLE
     Indication: PRODUCT USED FOR UNKNOWN INDICATION
     Dosage: 20 MG, QD
     Route: 048
     Dates: end: 20190313
  3. AMOXICILLIN. [Suspect]
     Active Substance: AMOXICILLIN
     Indication: PRODUCT USED FOR UNKNOWN INDICATION
     Dosage: 1500 MG, QD
     Route: 048
     Dates: start: 20190305, end: 20190310

REACTIONS (2)
  - Clostridium difficile colitis [Recovering/Resolving]
  - Abdominal pain [Unknown]

NARRATIVE: CASE EVENT DATE: 20190313
